FAERS Safety Report 8060697-4 (Version None)
Quarter: 2012Q1

REPORT INFORMATION
  Report Type: 
  Country: None (occurrence: None)
  Receive Date: 20120120
  Receipt Date: 20120112
  Transmission Date: 20120608
  Serious: Yes (Other)
  Sender: FDA-Public Use
  Company Number: US-BRISTOL-MYERS SQUIBB COMPANY-16319238

PATIENT
  Age: 70 Year
  Sex: Female

DRUGS (1)
  1. ORENCIA [Suspect]
     Indication: RHEUMATOID ARTHRITIS
     Dosage: ALSO TAKEN SUBCUTANEOUSLY.
     Route: 042

REACTIONS (3)
  - RETINAL VASCULAR DISORDER [None]
  - NASOPHARYNGITIS [None]
  - HOT FLUSH [None]
